FAERS Safety Report 5108344-5 (Version None)
Quarter: 2006Q3

REPORT INFORMATION
  Report Type: 
  Country: None (occurrence: None)
  Receive Date: 20060914
  Receipt Date: 20060914
  Transmission Date: 20061208
  Serious: Yes (Other)
  Sender: FDA-Public Use
  Company Number: None

PATIENT
  Age: 41 Year
  Sex: Female

DRUGS (1)
  1. ANECTINE [Suspect]
     Indication: INTUBATION
     Dosage: ONCE  IV
     Route: 042
     Dates: start: 20060901, end: 20060911

REACTIONS (2)
  - AREFLEXIA [None]
  - LOSS OF CONSCIOUSNESS [None]
